FAERS Safety Report 9502536 (Version 4)
Quarter: 2013Q4

REPORT INFORMATION
  Report Type: Report from Study
  Country: US (occurrence: US)
  Receive Date: 20130906
  Receipt Date: 20131009
  Transmission Date: 20140711
  Serious: Yes (Hospitalization, Other)
  Sender: FDA-Public Use
  Company Number: US-JNJFOC-20130817429

PATIENT
  Age: 14 Year
  Sex: Female
  Weight: 42.5 kg

DRUGS (12)
  1. REMICADE [Suspect]
     Indication: INFLAMMATORY BOWEL DISEASE
     Route: 042
     Dates: start: 20120130
  2. HUMIRA [Concomitant]
     Route: 065
  3. CALCIUM CARBONATE [Concomitant]
     Route: 065
  4. VITAMIN D [Concomitant]
     Route: 065
  5. CIPROFLOXACIN [Concomitant]
     Route: 065
  6. PERIACTIN [Concomitant]
     Route: 065
  7. FERROUS SULFATE [Concomitant]
     Route: 065
  8. FOLIC ACID [Concomitant]
     Route: 065
  9. METHOTREXATE [Concomitant]
     Route: 065
  10. ZOFRAN [Concomitant]
     Route: 065
  11. PROTONIX [Concomitant]
     Route: 065
  12. 6 MERCAPTOPURINE [Concomitant]
     Route: 065

REACTIONS (2)
  - Pyelonephritis [Recovered/Resolved]
  - Perirectal abscess [Recovered/Resolved]
